FAERS Safety Report 7793910-9 (Version None)
Quarter: 2011Q4

REPORT INFORMATION
  Report Type: 
  Country: None (occurrence: None)
  Receive Date: 20111004
  Receipt Date: 20110923
  Transmission Date: 20120403
  Serious: No
  Sender: FDA-Public Use
  Company Number: US-BIOGENIDEC-2011BI018805

PATIENT
  Age: 54 Year
  Sex: Female

DRUGS (1)
  1. TYSABRI [Suspect]
     Indication: MULTIPLE SCLEROSIS
     Route: 042
     Dates: start: 20110418

REACTIONS (10)
  - CONSTIPATION [None]
  - HEADACHE [None]
  - LOSS OF CONTROL OF LEGS [None]
  - HYPOAESTHESIA [None]
  - PAIN [None]
  - MULTIPLE SCLEROSIS [None]
  - DYSURIA [None]
  - BLADDER DISORDER [None]
  - VAGINAL INFECTION [None]
  - DRUG INEFFECTIVE [None]
